FAERS Safety Report 4527588-4 (Version None)
Quarter: 2004Q4

REPORT INFORMATION
  Report Type: 
  Country: None (occurrence: None)
  Receive Date: 20041215
  Receipt Date: 20041124
  Transmission Date: 20050328
  Serious: Yes (Hospitalization, Other)
  Sender: FDA-Public Use
  Company Number: PHBS2004JP15895

PATIENT
  Age: 57 Year
  Sex: Male
  Weight: 41 kg

DRUGS (10)
  1. GRAN [Suspect]
     Indication: FULL BLOOD COUNT DECREASED
     Dosage: 75 UG/D
     Route: 058
     Dates: start: 20040925, end: 20040930
  2. GRAN [Suspect]
     Dosage: 150 UG/D
     Route: 058
     Dates: start: 20041001, end: 20041017
  3. CYMERIN [Suspect]
     Indication: CHRONIC MYELOID LEUKAEMIA
     Dosage: 100 MG/D
     Route: 048
     Dates: start: 20040714, end: 20040805
  4. OMEPRAL [Suspect]
     Dosage: 20 MG/D
     Route: 048
     Dates: start: 20040629, end: 20041001
  5. GASMOTIN [Concomitant]
     Dosage: 3 DF/D
     Route: 048
     Dates: start: 20040712, end: 20041001
  6. ALLOID [Concomitant]
     Dosage: 60 ML/D
     Route: 048
     Dates: start: 20040629, end: 20041001
  7. MAGLAX [Concomitant]
     Dosage: 750 MG/D
     Route: 048
     Dates: start: 20040707
  8. ZYLORIC [Concomitant]
     Dosage: 300 MG/D
     Route: 048
     Dates: start: 20040714, end: 20040729
  9. GASTER D [Concomitant]
     Dosage: 20 MG/D
     Route: 048
     Dates: start: 20041002, end: 20041029
  10. GLEEVEC [Suspect]
     Indication: CHRONIC MYELOID LEUKAEMIA
     Dosage: 300 MG, QD
     Route: 048
     Dates: start: 20040811, end: 20040901

REACTIONS (12)
  - BONE MARROW DEPRESSION [None]
  - DYSPNOEA [None]
  - GASTRIC CANCER [None]
  - HAEMOGLOBIN DECREASED [None]
  - INTERSTITIAL LUNG DISEASE [None]
  - OXYGEN SUPPLEMENTATION [None]
  - PANCYTOPENIA [None]
  - PLATELET COUNT DECREASED [None]
  - PYREXIA [None]
  - RED BLOOD CELL COUNT DECREASED [None]
  - SURGERY [None]
  - WHITE BLOOD CELL COUNT DECREASED [None]
